FAERS Safety Report 10614726 (Version 2)
Quarter: 2016Q4

REPORT INFORMATION
  Report Type: Report from Study
  Country: JP (occurrence: JP)
  Receive Date: 20141201
  Receipt Date: 20161114
  Transmission Date: 20170206
  Serious: Yes (Other)
  Sender: FDA-Public Use
  Company Number: JP-ROCHE-1305850

PATIENT
  Sex: Female

DRUGS (5)
  1. ERIBULIN MESYLATE [Suspect]
     Active Substance: ERIBULIN MESYLATE
     Indication: HER-2 POSITIVE BREAST CANCER
     Dosage: EQUIVALENT TO 1.23 MG/M2 WAS ADMINISTERED ON DAY 1 AND DAY 8 EVERY 3 WEEK/ CYCLE 1
     Route: 042
  2. TRASTUZUMAB [Suspect]
     Active Substance: TRASTUZUMAB
     Dosage: LOADING DOSE
     Route: 042
  3. TRASTUZUMAB [Suspect]
     Active Substance: TRASTUZUMAB
     Dosage: PART I
     Route: 042
  4. TRASTUZUMAB [Suspect]
     Active Substance: TRASTUZUMAB
     Dosage: PART II
     Route: 042
  5. TRASTUZUMAB [Suspect]
     Active Substance: TRASTUZUMAB
     Indication: HER-2 POSITIVE BREAST CANCER
     Dosage: LOADING DOSE
     Route: 042

REACTIONS (7)
  - Neutropenia [Unknown]
  - Febrile neutropenia [Unknown]
  - Hypertriglyceridaemia [Unknown]
  - Hypophosphataemia [Unknown]
  - Lymphopenia [Unknown]
  - Neuropathy peripheral [Unknown]
  - Leukopenia [Unknown]
